FAERS Safety Report 17521730 (Version 1)
Quarter: 2020Q1

REPORT INFORMATION
  Report Type: Spontaneous
  Country: US (occurrence: US)
  Receive Date: 20200310
  Receipt Date: 20200310
  Transmission Date: 20200409
  Serious: No
  Sender: FDA-Public Use
  Company Number: US-ASTRAZENECA-2019SF52541

PATIENT
  Age: 31 Year
  Sex: Male
  Weight: 95.2 kg

DRUGS (1)
  1. NEXIUM 24HR [Suspect]
     Active Substance: ESOMEPRAZOLE MAGNESIUM
     Indication: GASTRIC DISORDER
     Dosage: 20 MG, 1X/DAY (ONCE A DAY, EVERY 24 HOURS, EVERY DAY FOR 14 DAYS)
     Route: 048

REACTIONS (4)
  - Sleep disorder [Unknown]
  - Discomfort [Unknown]
  - Back pain [Unknown]
  - Drug ineffective [Unknown]
